FAERS Safety Report 4404239-0 (Version None)
Quarter: 2004Q3

REPORT INFORMATION
  Report Type: 
  Country: None (occurrence: None)
  Receive Date: 20040720
  Receipt Date: 20040707
  Transmission Date: 20050211
  Serious: Yes (Hospitalization)
  Sender: FDA-Public Use
  Company Number: PT-JNJFOC-20040306049

PATIENT
  Age: 67 Year
  Sex: Female

DRUGS (4)
  1. CISAPRIDE (CISAPRIDE) TABLETS [Suspect]
     Indication: DRUG USE FOR UNKNOWN INDICATION
     Dosage: 5 MG, ORAL
     Route: 048
  2. CLARITHROMYCIN (CLARITHROMYCIN) TABLETS [Suspect]
     Indication: RESPIRATORY TRACT INFECTION
     Dosage: 1000 MG, ORAL
     Route: 048
     Dates: start: 20031230
  3. LANOXIN [Suspect]
     Indication: CARDIAC FAILURE
     Dosage: SEE IMAGE
     Route: 048
     Dates: end: 20040101
  4. TRAMADOL HCL [Suspect]
     Indication: DRUG USE FOR UNKNOWN INDICATION

REACTIONS (9)
  - BLOOD BILIRUBIN INCREASED [None]
  - CARDIOACTIVE DRUG LEVEL INCREASED [None]
  - DEHYDRATION [None]
  - DRUG INTERACTION [None]
  - DYSARTHRIA [None]
  - INFECTION [None]
  - PROSTRATION [None]
  - RESPIRATORY TRACT INFECTION [None]
  - THERAPEUTIC AGENT TOXICITY [None]
